FAERS Safety Report 24096563 (Version 1)
Quarter: 2024Q3

REPORT INFORMATION
  Report Type: Spontaneous
  Country: DE (occurrence: DE)
  Receive Date: 20240716
  Receipt Date: 20240716
  Transmission Date: 20241016
  Serious: Yes (Other)
  Sender: REGENERON
  Company Number: DE-SANOFI-02097311

PATIENT
  Sex: Male

DRUGS (1)
  1. PRALUENT [Suspect]
     Active Substance: ALIROCUMAB
     Indication: Product used for unknown indication
     Dosage: 150 MG
     Route: 058
     Dates: start: 20240607, end: 20240617

REACTIONS (6)
  - Circulatory collapse [Unknown]
  - Visual impairment [Unknown]
  - Dizziness [Unknown]
  - Nausea [Unknown]
  - Fall [Unknown]
  - Drug intolerance [Unknown]

NARRATIVE: CASE EVENT DATE: 20240601
